FAERS Safety Report 24881451 (Version 1)
Quarter: 2025Q1

REPORT INFORMATION
  Report Type: Spontaneous
  Country: ES (occurrence: ES)
  Receive Date: 20250124
  Receipt Date: 20250124
  Transmission Date: 20250409
  Serious: Yes (Hospitalization, Other)
  Sender: VALIDUS
  Company Number: ES-VALIDUS PHARMACEUTICALS LLC-ES-VDP-2025-019534

PATIENT

DRUGS (4)
  1. FUROSEMIDE [Suspect]
     Active Substance: FUROSEMIDE
     Indication: Cardiac failure congestive
     Dosage: 240 MG, QD
     Route: 048
     Dates: start: 20240621, end: 20240923
  2. ACETAZOLAMIDE [Suspect]
     Active Substance: ACETAZOLAMIDE
     Indication: Cardiac failure congestive
     Dosage: 250 MG, QD
     Route: 048
     Dates: start: 20240621, end: 20240923
  3. SPIRONOLACTONE [Suspect]
     Active Substance: SPIRONOLACTONE
     Indication: Cardiac failure congestive
     Dosage: 100 MG, QD (100 MG EVERY 24 HOURS UNTIL 19/09/2024, DOSE REDUCED 25 MG PER DAY UNTIL 23/09/2024)
     Route: 048
     Dates: start: 20240904, end: 20240916
  4. SPIRONOLACTONE [Suspect]
     Active Substance: SPIRONOLACTONE
     Dosage: 25 MG, QOD
     Route: 048
     Dates: start: 20240917, end: 20240923

REACTIONS (3)
  - Hyperkalaemia [Recovered/Resolved]
  - Metabolic acidosis [Recovered/Resolved]
  - Acute kidney injury [Recovered/Resolved]

NARRATIVE: CASE EVENT DATE: 20240916
